FAERS Safety Report 18009138 (Version 1)
Quarter: 2020Q3

REPORT INFORMATION
  Report Type: Spontaneous
  Country: US (occurrence: US)
  Receive Date: 20200710
  Receipt Date: 20200710
  Transmission Date: 20201103
  Serious: No
  Sender: FDA-Public Use
  Company Number: US-SAOL THERAPEUTICS-2019SAO00355

PATIENT
  Age: 68 Year
  Sex: Female

DRUGS (3)
  1. LIORESAL [Suspect]
     Active Substance: BACLOFEN
     Dosage: 393.8 ?G, \DAY
     Route: 037
     Dates: start: 2019, end: 20191008
  2. LIORESAL [Suspect]
     Active Substance: BACLOFEN
     Indication: MUSCLE SPASTICITY
     Dosage: 394 ?G, \DAY
     Route: 037
     Dates: start: 20190708, end: 2019
  3. LIORESAL [Suspect]
     Active Substance: BACLOFEN
     Indication: MUSCLE SPASTICITY
     Dosage: 393.8 ?G, \DAY
     Route: 037
     Dates: start: 20191008

REACTIONS (2)
  - Fatigue [Unknown]
  - Device programming error [Recovered/Resolved]

NARRATIVE: CASE EVENT DATE: 201908
